FAERS Safety Report 21780234 (Version 1)
Quarter: 2022Q4

REPORT INFORMATION
  Report Type: Report from Study
  Country: US (occurrence: US)
  Receive Date: 20221227
  Receipt Date: 20221227
  Transmission Date: 20230112
  Serious: No
  Sender: FDA-Public Use
  Company Number: US-ABBVIE-4216324

PATIENT
  Sex: Male

DRUGS (3)
  1. HUMIRA [Suspect]
     Active Substance: ADALIMUMAB
     Indication: Rheumatoid arthritis
     Dosage: CITRATE FREE
     Route: 058
  2. HUMIRA [Suspect]
     Active Substance: ADALIMUMAB
     Route: 058
     Dates: start: 20220608
  3. COVID [Concomitant]
     Indication: COVID-19 immunisation
     Dosage: COVID BOOSTER
     Route: 030

REACTIONS (3)
  - Drug level decreased [Recovering/Resolving]
  - Rash [Recovering/Resolving]
  - Blood test abnormal [Recovering/Resolving]
